FAERS Safety Report 17036690 (Version 2)
Quarter: 2025Q3

REPORT INFORMATION
  Report Type: Spontaneous
  Country: GB (occurrence: GB)
  Receive Date: 20191115
  Receipt Date: 20250730
  Transmission Date: 20251021
  Serious: Yes (Death, Other)
  Sender: SANOFI AVENTIS
  Company Number: GB-SA-2019SA317062

PATIENT
  Age: 60 Year
  Sex: Male

DRUGS (1)
  1. DUPILUMAB [Suspect]
     Active Substance: DUPILUMAB
     Indication: Dermatitis atopic

REACTIONS (10)
  - Cutaneous T-cell lymphoma stage IV [Fatal]
  - Unmasking of previously unidentified disease [Fatal]
  - Disease progression [Fatal]
  - Rash erythematous [Fatal]
  - Lymphadenopathy [Fatal]
  - Skin mass [Fatal]
  - Skin plaque [Fatal]
  - Ulcer [Fatal]
  - Papule [Fatal]
  - Metastases to lymph nodes [Fatal]
